FAERS Safety Report 4799870-7 (Version None)
Quarter: 2005Q4

REPORT INFORMATION
  Report Type: 
  Country: None (occurrence: None)
  Receive Date: 20051017
  Receipt Date: 20050901
  Transmission Date: 20060501
  Serious: Yes (Death)
  Sender: FDA-Public Use
  Company Number: US-BRISTOL-MYERS SQUIBB COMPANY-13096680

PATIENT
  Age: 67 Year
  Sex: Male
  Weight: 77 kg

DRUGS (7)
  1. ABILIFY [Suspect]
     Indication: PSYCHOTIC DISORDER
  2. ABILIFY [Suspect]
     Indication: HALLUCINATION, AUDITORY
  3. ABILIFY [Suspect]
     Indication: PARANOIA
  4. ABILIFY [Suspect]
     Indication: THINKING ABNORMAL
  5. DEPAKOTE ER [Concomitant]
     Indication: THINKING ABNORMAL
     Route: 048
  6. DEPAKOTE ER [Concomitant]
     Indication: MOOD ALTERED
     Route: 048
  7. RESTORIL [Concomitant]

REACTIONS (1)
  - MYOCARDIAL INFARCTION [None]
